FAERS Safety Report 16123527 (Version 1)
Quarter: 2019Q1

REPORT INFORMATION
  Report Type: Spontaneous
  Country: US (occurrence: US)
  Receive Date: 20190327
  Receipt Date: 20190327
  Transmission Date: 20190418
  Serious: No
  Sender: FDA-Public Use
  Company Number: US-009507513-1903USA011476

PATIENT
  Age: 73 Year
  Sex: Female

DRUGS (21)
  1. NITROFURANTOIN. [Concomitant]
     Active Substance: NITROFURANTOIN
  2. ASPIRIN. [Concomitant]
     Active Substance: ASPIRIN
  3. POTASSIUM (UNSPECIFIED) [Suspect]
     Active Substance: POTASSIUM
  4. PROBIOTICS (UNSPECIFIED) [Concomitant]
     Active Substance: PROBIOTICS NOS
  5. METFORMIN [Concomitant]
     Active Substance: METFORMIN HYDROCHLORIDE
  6. OMEPRAZOLE. [Concomitant]
     Active Substance: OMEPRAZOLE
  7. DULERA [Suspect]
     Active Substance: FORMOTEROL FUMARATE DIHYDRATE\MOMETASONE FUROATE
     Indication: CHRONIC OBSTRUCTIVE PULMONARY DISEASE
     Dosage: 2 PUFFS 1 X DAILY
     Route: 055
     Dates: start: 201809
  8. CYMBALTA [Concomitant]
     Active Substance: DULOXETINE HYDROCHLORIDE
  9. ATORVASTATIN [Concomitant]
     Active Substance: ATORVASTATIN
  10. INSULIN [Concomitant]
     Active Substance: INSULIN NOS
  11. LANTUS [Concomitant]
     Active Substance: INSULIN GLARGINE
  12. MAGNESIUM OXIDE. [Concomitant]
     Active Substance: MAGNESIUM OXIDE
  13. CYANOCOBALAMIN. [Concomitant]
     Active Substance: CYANOCOBALAMIN
  14. FOLIC ACID. [Concomitant]
     Active Substance: FOLIC ACID
  15. PROPYLTHIOURACIL. [Concomitant]
     Active Substance: PROPYLTHIOURACIL
  16. GEMFIBROZIL. [Concomitant]
     Active Substance: GEMFIBROZIL
  17. LYRICA [Concomitant]
     Active Substance: PREGABALIN
  18. IRON (UNSPECIFIED) [Concomitant]
     Active Substance: IRON
  19. METOPROLOL. [Concomitant]
     Active Substance: METOPROLOL
  20. VITAMINS (UNSPECIFIED) [Concomitant]
     Active Substance: VITAMINS
  21. CALCIUM (UNSPECIFIED) [Concomitant]
     Active Substance: CALCIUM

REACTIONS (4)
  - Product use in unapproved indication [Unknown]
  - Urinary tract infection [Recovering/Resolving]
  - Underdose [Unknown]
  - Inappropriate schedule of product administration [Unknown]

NARRATIVE: CASE EVENT DATE: 201809
